FAERS Safety Report 17603164 (Version 1)
Quarter: 2020Q1

REPORT INFORMATION
  Report Type: Spontaneous
  Country: DE (occurrence: DE)
  Receive Date: 20200331
  Receipt Date: 20200331
  Transmission Date: 20200409
  Serious: Yes (Hospitalization)
  Sender: FDA-Public Use
  Company Number: NVSC2020DE085594

PATIENT
  Age: 67 Year
  Sex: Male

DRUGS (3)
  1. RYDAPT [Suspect]
     Active Substance: MIDOSTAURIN
     Indication: SPLENOMEGALY
  2. RYDAPT [Suspect]
     Active Substance: MIDOSTAURIN
     Indication: ABDOMINAL DISCOMFORT
  3. RYDAPT [Suspect]
     Active Substance: MIDOSTAURIN
     Indication: SYSTEMIC MASTOCYTOSIS
     Dosage: 100 MG
     Route: 065
     Dates: start: 201807, end: 201909

REACTIONS (4)
  - General physical health deterioration [Recovered/Resolved]
  - Nausea [Recovered/Resolved]
  - Anaemia [Recovered/Resolved]
  - Tryptase increased [Recovered/Resolved]

NARRATIVE: CASE EVENT DATE: 201808
